FAERS Safety Report 15887101 (Version 12)
Quarter: 2020Q3

REPORT INFORMATION
  Report Type: Report from Study
  Country: BE (occurrence: BE)
  Receive Date: 20190130
  Receipt Date: 20200918
  Transmission Date: 20201102
  Serious: Yes (Hospitalization)
  Sender: FDA-Public Use
  Company Number: BE-ROCHE-2251146

PATIENT
  Age: 78 Year
  Sex: Male
  Weight: 86 kg

DRUGS (73)
  1. ACTOSOLV [Concomitant]
     Dates: start: 20181227, end: 20181227
  2. AUGMENTIN [Concomitant]
     Active Substance: AMOXICILLIN\CLAVULANATE POTASSIUM
     Dates: start: 20191103, end: 20191105
  3. ATROVENT [Concomitant]
     Active Substance: IPRATROPIUM BROMIDE
     Indication: CYTOKINE RELEASE SYNDROME
     Dates: start: 20181229, end: 20190111
  4. INDERAL [Concomitant]
     Active Substance: PROPRANOLOL HYDROCHLORIDE
     Indication: HYPERTENSION
     Dates: start: 20190218
  5. LYRICA [Concomitant]
     Active Substance: PREGABALIN
     Indication: NEUROPATHY PERIPHERAL
     Dates: start: 20180524
  6. PARACETAMOL [Concomitant]
     Active Substance: ACETAMINOPHEN
     Indication: CYTOKINE RELEASE SYNDROME
     Route: 048
     Dates: start: 20181227, end: 20181227
  7. TEMESTA [Concomitant]
     Indication: INSOMNIA
     Dates: start: 20190412, end: 20190412
  8. TAZOCIN [Concomitant]
     Active Substance: PIPERACILLIN SODIUM\TAZOBACTAM SODIUM
     Indication: PNEUMONIA
     Dates: start: 20191105, end: 20191118
  9. LASIX [Concomitant]
     Active Substance: FUROSEMIDE
     Dates: start: 20181229, end: 20181230
  10. SOLU?MEDROL [Concomitant]
     Active Substance: METHYLPREDNISOLONE SODIUM SUCCINATE
     Route: 042
     Dates: start: 20190723, end: 20190723
  11. TAVEGYL [Concomitant]
     Active Substance: CLEMASTINE FUMARATE
     Route: 042
     Dates: start: 20190723, end: 20190723
  12. PARACETAMOL [Concomitant]
     Active Substance: ACETAMINOPHEN
     Route: 048
     Dates: start: 20190723, end: 20190723
  13. BURINEX [Concomitant]
     Active Substance: BUMETANIDE
     Indication: FLUID RETENTION
     Dates: start: 20181231, end: 20181231
  14. TRAMADOL. [Concomitant]
     Active Substance: TRAMADOL
     Indication: PAIN
     Dates: start: 20181228, end: 20181228
  15. ACICLOVIR [Concomitant]
     Active Substance: ACYCLOVIR
     Dates: start: 20181221
  16. DENTIO [Concomitant]
     Dates: start: 20190214, end: 20190214
  17. DENTIO [Concomitant]
     Dates: start: 20181227, end: 20190112
  18. CITANEST [Concomitant]
     Active Substance: PRILOCAINE
     Dates: start: 20181210, end: 20181210
  19. FLUCONAZOLE. [Concomitant]
     Active Substance: FLUCONAZOLE
     Indication: ANTIFUNGAL PROPHYLAXIS
     Dates: start: 20181220
  20. ZOVIRAX [Concomitant]
     Active Substance: ACYCLOVIR
     Dosage: PROPHYLAXIS H ZOSTER INFECTION
     Dates: start: 20190211, end: 20190211
  21. CEDOCARD [Concomitant]
     Active Substance: ISOSORBIDE DINITRATE
     Indication: PNEUMONIA
     Dates: start: 20191103, end: 20191103
  22. OBINUTUZUMAB. [Suspect]
     Active Substance: OBINUTUZUMAB
     Indication: B-CELL LYMPHOMA
     Dosage: MOST RECENT DOSE AT 13:52
     Route: 042
     Dates: start: 20181220, end: 20181220
  23. ZYLORIC [Concomitant]
     Active Substance: ALLOPURINOL
     Indication: PROPHYLAXIS
     Dates: start: 201410, end: 20181220
  24. SOLU?MEDROL [Concomitant]
     Active Substance: METHYLPREDNISOLONE SODIUM SUCCINATE
     Route: 042
     Dates: start: 20181227, end: 20181227
  25. SOLU?MEDROL [Concomitant]
     Active Substance: METHYLPREDNISOLONE SODIUM SUCCINATE
     Route: 042
     Dates: start: 20181220, end: 20181220
  26. TAVEGYL [Concomitant]
     Active Substance: CLEMASTINE FUMARATE
     Route: 042
     Dates: start: 20181220, end: 20181220
  27. TAVEGYL [Concomitant]
     Active Substance: CLEMASTINE FUMARATE
     Route: 042
     Dates: start: 20190814, end: 20190814
  28. PARACETAMOL [Concomitant]
     Active Substance: ACETAMINOPHEN
     Dates: start: 20190106, end: 20190106
  29. PARACETAMOL [Concomitant]
     Active Substance: ACETAMINOPHEN
     Route: 042
     Dates: start: 20190814, end: 20190814
  30. MOVICOL [Concomitant]
     Active Substance: POLYETHYLENE GLYCOL 3350\POTASSIUM CHLORIDE\SODIUM BICARBONATE\SODIUM CHLORIDE
     Indication: CONSTIPATION
     Dates: start: 20190131, end: 20190131
  31. MOVICOL [Concomitant]
     Active Substance: POLYETHYLENE GLYCOL 3350\POTASSIUM CHLORIDE\SODIUM BICARBONATE\SODIUM CHLORIDE
     Dates: start: 20190107, end: 20190107
  32. INSULIN [Concomitant]
     Active Substance: INSULIN NOS
     Indication: HYPERGLYCAEMIA
     Dates: start: 20190124, end: 20190124
  33. PROMAGNOR [Concomitant]
     Active Substance: MAGNESIUM
     Indication: HYPOMAGNESAEMIA
     Dates: start: 20190818, end: 20190821
  34. NANOGAM [Concomitant]
     Active Substance: HUMAN IMMUNOGLOBULIN G
     Indication: HYPOGAMMAGLOBULINAEMIA
     Dates: start: 20190820, end: 20190820
  35. PRIVIGEN [Concomitant]
     Active Substance: HUMAN IMMUNOGLOBULIN G
     Indication: HYPOGAMMAGLOBULINAEMIA
     Dates: start: 20190917, end: 20190917
  36. OMEPRAZOLE. [Concomitant]
     Active Substance: OMEPRAZOLE
     Indication: PROPHYLAXIS AGAINST GASTROINTESTINAL ULCER
     Dates: start: 20181126
  37. LASIX [Concomitant]
     Active Substance: FUROSEMIDE
     Indication: FLUID RETENTION
     Dates: start: 20190108, end: 20190108
  38. CICALFATE [Concomitant]
     Indication: DRY SKIN
     Dates: start: 20190214, end: 20190220
  39. DAFALGAN [Concomitant]
     Active Substance: ACETAMINOPHEN
     Route: 048
     Dates: start: 20181220, end: 20181220
  40. PARACETAMOL [Concomitant]
     Active Substance: ACETAMINOPHEN
     Indication: PREMEDICATION
     Route: 048
     Dates: start: 20190117, end: 20190117
  41. PARACETAMOL [Concomitant]
     Active Substance: ACETAMINOPHEN
     Indication: BRONCHITIS
     Dates: start: 20181220, end: 20181220
  42. PARACETAMOL [Concomitant]
     Active Substance: ACETAMINOPHEN
     Dates: start: 20190917, end: 20190917
  43. LITICAN [Concomitant]
     Active Substance: ALIZAPRIDE HYDROCHLORIDE
     Indication: NAUSEA
     Dates: start: 20181228, end: 20181228
  44. DENTIO [Concomitant]
     Dates: start: 20190321
  45. DUOVENT [Concomitant]
     Active Substance: FENOTEROL HYDROBROMIDE
     Indication: DYSPNOEA
     Dates: start: 201602
  46. DUOVENT [Concomitant]
     Active Substance: FENOTEROL HYDROBROMIDE
     Indication: INFUSION RELATED REACTION
     Dates: start: 20181220, end: 20181220
  47. IMODIUM [Concomitant]
     Active Substance: LOPERAMIDE HYDROCHLORIDE
     Indication: DIARRHOEA
     Dates: start: 20181229, end: 20181229
  48. INSULIN [Concomitant]
     Active Substance: INSULIN NOS
     Indication: HYPOMAGNESAEMIA
     Dates: start: 20190129, end: 20190129
  49. RO7082859 (CD20/C3 T?CELL BISPECIFIC MAB) [Suspect]
     Active Substance: GLOFITAMAB
     Indication: B-CELL LYMPHOMA
     Dosage: DOSE OF MOST RECENT RO7082859 ADMINISTERED PRIOR TO AE ONSET: 1800 UG ?DATE OF MOST RECENT DOSE OF R
     Route: 042
     Dates: start: 20181227
  50. TOCILIZUMAB. [Suspect]
     Active Substance: TOCILIZUMAB
     Indication: B-CELL LYMPHOMA
     Dosage: DATE OF MOST RECENT DOSE OF TOCILIZUMAB PRIOR TO ADVERSE EVENT ONSET: 12/APR/2019 AT 1:55 AM (DOSE:
     Route: 042
     Dates: start: 20190412
  51. DIFLUCAN [Concomitant]
     Active Substance: FLUCONAZOLE
     Indication: ANTIFUNGAL PROPHYLAXIS
     Dates: start: 20181126, end: 20181220
  52. SOLU?MEDROL [Concomitant]
     Active Substance: METHYLPREDNISOLONE SODIUM SUCCINATE
     Indication: PREMEDICATION
     Route: 042
     Dates: start: 20190117, end: 20190117
  53. TAVEGYL [Concomitant]
     Active Substance: CLEMASTINE FUMARATE
     Indication: PREMEDICATION
     Route: 042
     Dates: start: 20190117, end: 20190117
  54. PARACETAMOL [Concomitant]
     Active Substance: ACETAMINOPHEN
     Indication: CHILLS
     Dates: start: 20181228, end: 20181229
  55. PARACETAMOL [Concomitant]
     Active Substance: ACETAMINOPHEN
     Dates: start: 20190820, end: 20190820
  56. ALLOPURINOL. [Concomitant]
     Active Substance: ALLOPURINOL
     Indication: PROPHYLAXIS
     Dates: start: 20181221
  57. ACTOSOLV [Concomitant]
     Dates: start: 20190304, end: 20190304
  58. PRIMPERAN [Concomitant]
     Active Substance: METOCLOPRAMIDE HYDROCHLORIDE
     Indication: NAUSEA
     Dates: start: 20171106, end: 20181220
  59. MOVICOL [Concomitant]
     Active Substance: POLYETHYLENE GLYCOL 3350\POTASSIUM CHLORIDE\SODIUM BICARBONATE\SODIUM CHLORIDE
     Dates: start: 20190105, end: 20190105
  60. ELOCOM [Concomitant]
     Active Substance: MOMETASONE FUROATE
     Indication: ECZEMA
     Dates: start: 20190910
  61. ATEZOLIZUMAB. [Suspect]
     Active Substance: ATEZOLIZUMAB
     Indication: B-CELL LYMPHOMA
     Dosage: DOSE OF MOST RECENT ATEZOLIZUMAB ADMINISTERED PRIOR TO AE ONSET: 1200 MG?DATE OF MOST RECENT DOSE OF
     Route: 042
     Dates: start: 20190117
  62. METFORMIN [Concomitant]
     Active Substance: METFORMIN HYDROCHLORIDE
     Indication: STEROID DIABETES
     Dates: start: 20181126
  63. BACTRIM [Concomitant]
     Active Substance: SULFAMETHOXAZOLE\TRIMETHOPRIM
     Indication: ANTIFUNGAL PROPHYLAXIS
     Dates: start: 20160331
  64. LASIX [Concomitant]
     Active Substance: FUROSEMIDE
     Dates: start: 20190215, end: 20190215
  65. SOLU?MEDROL [Concomitant]
     Active Substance: METHYLPREDNISOLONE SODIUM SUCCINATE
     Route: 042
     Dates: start: 20190814, end: 20190814
  66. TAVEGYL [Concomitant]
     Active Substance: CLEMASTINE FUMARATE
     Route: 042
     Dates: start: 20181227, end: 20181227
  67. PARACETAMOL [Concomitant]
     Active Substance: ACETAMINOPHEN
     Dates: start: 20190103, end: 20190103
  68. CICALFATE [Concomitant]
     Indication: SKIN IRRITATION
     Dates: start: 20190107, end: 20190111
  69. DETRUSITOL [Concomitant]
     Active Substance: TOLTERODINE TARTRATE
     Indication: URINARY INCONTINENCE
     Dates: start: 20181228
  70. DENTIO [Concomitant]
     Dosage: DENTIO MOUTH WASH
     Dates: start: 20181221
  71. MEDROL [Concomitant]
     Active Substance: METHYLPREDNISOLONE
     Indication: PNEUMONIA
     Dates: start: 201811, end: 20190213
  72. AUGMENTIN [Concomitant]
     Active Substance: AMOXICILLIN\CLAVULANATE POTASSIUM
     Indication: CYTOKINE RELEASE SYNDROME
     Dates: start: 20181229, end: 20190102
  73. LENALIDOMIDE [Concomitant]
     Active Substance: LENALIDOMIDE
     Indication: NEOPLASM MALIGNANT
     Dates: start: 20190910, end: 20190924

REACTIONS (3)
  - Myopathy [Recovered/Resolved]
  - Myopathy [Not Recovered/Not Resolved]
  - Myopathy [Recovered/Resolved with Sequelae]

NARRATIVE: CASE EVENT DATE: 20190118
